FAERS Safety Report 26092699 (Version 1)
Quarter: 2025Q4

REPORT INFORMATION
  Report Type: Spontaneous
  Country: EU (occurrence: EU)
  Receive Date: 20251126
  Receipt Date: 20251126
  Transmission Date: 20260117
  Serious: No
  Sender: ALKEM
  Company Number: EU-ALKEM LABORATORIES LIMITED-DE-ALKEM-2024-26111

PATIENT

DRUGS (17)
  1. MYCOPHENOLATE MOFETIL [Suspect]
     Active Substance: MYCOPHENOLATE MOFETIL
     Indication: Immunosuppression
     Dosage: UNK
     Route: 065
  2. MYCOPHENOLATE MOFETIL [Suspect]
     Active Substance: MYCOPHENOLATE MOFETIL
     Indication: Noninfective chorioretinitis
  3. MYCOPHENOLATE MOFETIL [Suspect]
     Active Substance: MYCOPHENOLATE MOFETIL
     Indication: Birdshot chorioretinopathy
  4. ADALIMUMAB [Suspect]
     Active Substance: ADALIMUMAB
     Indication: Immunosuppression
     Dosage: UNK
     Route: 065
  5. ADALIMUMAB [Suspect]
     Active Substance: ADALIMUMAB
     Indication: Noninfective chorioretinitis
  6. ADALIMUMAB [Suspect]
     Active Substance: ADALIMUMAB
     Indication: Birdshot chorioretinopathy
  7. CYCLOSPORINE [Suspect]
     Active Substance: CYCLOSPORINE
     Indication: Immunosuppression
     Dosage: UNK
     Route: 065
  8. CYCLOSPORINE [Suspect]
     Active Substance: CYCLOSPORINE
     Indication: Noninfective chorioretinitis
  9. CYCLOSPORINE [Suspect]
     Active Substance: CYCLOSPORINE
     Indication: Birdshot chorioretinopathy
  10. DEXAMETHASONE [Suspect]
     Active Substance: DEXAMETHASONE
     Indication: Immunosuppression
     Dosage: UNK (MINIMUM OF SIX MONTHS)
  11. DEXAMETHASONE [Suspect]
     Active Substance: DEXAMETHASONE
     Indication: Noninfective chorioretinitis
  12. DEXAMETHASONE [Suspect]
     Active Substance: DEXAMETHASONE
     Indication: Birdshot chorioretinopathy
  13. PREDNISOLONE [Suspect]
     Active Substance: PREDNISOLONE
     Indication: Immunosuppression
     Dosage: UNK (LESS THAN 10 MILLIGRAM)
     Route: 065
  14. PREDNISOLONE [Suspect]
     Active Substance: PREDNISOLONE
     Indication: Noninfective chorioretinitis
  15. PREDNISOLONE [Suspect]
     Active Substance: PREDNISOLONE
     Indication: Birdshot chorioretinopathy
  16. TOCILIZUMAB [Suspect]
     Active Substance: TOCILIZUMAB
     Indication: Noninfective chorioretinitis
     Dosage: 162 MILLIGRAM, ONCE WEEKLY
     Route: 058
  17. TOCILIZUMAB [Suspect]
     Active Substance: TOCILIZUMAB
     Indication: Birdshot chorioretinopathy
     Dosage: UNK (18 X 8 MILLIGRAM PER KILOGRAM) (BODY WEIGHT AT 4-WEEK INTERVALS) (EVERY MONTH)
     Route: 042

REACTIONS (3)
  - Upper respiratory tract infection [Unknown]
  - Therapy partial responder [Unknown]
  - Off label use [Unknown]
